FAERS Safety Report 13339229 (Version 2)
Quarter: 2017Q2

REPORT INFORMATION
  Report Type: Spontaneous
  Country: GB (occurrence: GB)
  Receive Date: 20170315
  Receipt Date: 20170425
  Transmission Date: 20170830
  Serious: Yes (Hospitalization)
  Sender: FDA-Public Use
  Company Number: GB-BAYER-2017-050037

PATIENT
  Age: 45 Year
  Sex: Male
  Weight: 114 kg

DRUGS (1)
  1. NAPROXEN SODIUM ({= 220 MG) [Suspect]
     Active Substance: NAPROXEN SODIUM
     Dosage: 1 DF, BID
     Dates: start: 201702

REACTIONS (3)
  - Erosive duodenitis [Unknown]
  - Dizziness [Not Recovered/Not Resolved]
  - Gastritis erosive [Recovering/Resolving]

NARRATIVE: CASE EVENT DATE: 20170305
